FAERS Safety Report 12837379 (Version 2)
Quarter: 2017Q1

REPORT INFORMATION
  Report Type: Spontaneous
  Country: US (occurrence: US)
  Receive Date: 20161011
  Receipt Date: 20170110
  Transmission Date: 20170428
  Serious: Yes (Other)
  Sender: FDA-Public Use
  Company Number: US-ASTRAZENECA-2016SF06231

PATIENT
  Age: 14065 Day
  Sex: Male
  Weight: 90.7 kg

DRUGS (6)
  1. NORCO [Suspect]
     Active Substance: ACETAMINOPHEN\HYDROCODONE BITARTRATE
     Indication: BACK PAIN
     Route: 048
     Dates: start: 2004, end: 2006
  2. NORCO [Suspect]
     Active Substance: ACETAMINOPHEN\HYDROCODONE BITARTRATE
     Indication: BACK PAIN
     Route: 048
     Dates: start: 2014
  3. RESTORIL [Concomitant]
     Active Substance: TEMAZEPAM
     Indication: SLEEP DISORDER
     Route: 048
     Dates: start: 2015
  4. XANAX [Concomitant]
     Active Substance: ALPRAZOLAM
     Indication: ANXIETY
     Route: 048
     Dates: start: 2015
  5. MOVANTIK [Suspect]
     Active Substance: NALOXEGOL OXALATE
     Indication: DYSPEPSIA
     Route: 048
     Dates: start: 20160929
  6. XANAX [Concomitant]
     Active Substance: ALPRAZOLAM
     Indication: SLEEP DISORDER
     Route: 048
     Dates: start: 2015

REACTIONS (8)
  - Vomiting [Unknown]
  - Nausea [Unknown]
  - Haemoptysis [Unknown]
  - Cough [Unknown]
  - Haematemesis [Unknown]
  - Throat tightness [Unknown]
  - Mouth haemorrhage [Recovered/Resolved]
  - Rash [Unknown]

NARRATIVE: CASE EVENT DATE: 20160930
